FAERS Safety Report 7292323-6 (Version None)
Quarter: 2011Q1

REPORT INFORMATION
  Report Type: 
  Country: None (occurrence: None)
  Receive Date: 20110202
  Receipt Date: 20110128
  Transmission Date: 20110831
  Serious: Yes (Other)
  Sender: FDA-Public Use
  Company Number: A0910193A

PATIENT
  Age: 59 Year
  Sex: Female

DRUGS (1)
  1. UREA PEROXIDE [Suspect]
     Indication: CERUMEN IMPACTION

REACTIONS (5)
  - DRUG ADMINISTRATION ERROR [None]
  - HYPOACUSIS [None]
  - EAR DISCOMFORT [None]
  - DEAFNESS [None]
  - DRUG INEFFECTIVE [None]
